FAERS Safety Report 15665080 (Version 1)
Quarter: 2018Q4

REPORT INFORMATION
  Report Type: Spontaneous
  Country: RO (occurrence: RO)
  Receive Date: 20181128
  Receipt Date: 20181128
  Transmission Date: 20190205
  Serious: Yes (Life-Threatening)
  Sender: FDA-Public Use
  Company Number: RO-ELI_LILLY_AND_COMPANY-RO201811012501

PATIENT
  Age: 59 Year
  Sex: Male

DRUGS (5)
  1. FOLINIC ACID [Concomitant]
     Active Substance: LEUCOVORIN
     Indication: ADENOCARCINOMA OF COLON
     Dosage: 750 MG, UNKNOWN
     Route: 042
     Dates: start: 20181120, end: 20181120
  2. ERBITUX [Suspect]
     Active Substance: CETUXIMAB
     Indication: ADENOCARCINOMA OF COLON
     Dosage: 900 MG, UNKNOWN
     Route: 042
     Dates: start: 20181120, end: 20181120
  3. IRINOTECAN [Concomitant]
     Active Substance: IRINOTECAN
     Indication: ADENOCARCINOMA OF COLON
     Dosage: 340 MG, UNKNOWN
     Route: 042
     Dates: start: 20181120, end: 20181120
  4. 5-FLUORACILO [Concomitant]
     Active Substance: FLUOROURACIL
     Indication: ADENOCARCINOMA OF COLON
     Dosage: 2550 MG, UNKNOWN
     Route: 042
     Dates: start: 20181120, end: 20181120
  5. 5-FLUORACILO [Concomitant]
     Active Substance: FLUOROURACIL
     Dosage: 750 MG, UNK
     Route: 042
     Dates: start: 20181120, end: 20181120

REACTIONS (6)
  - Anxiety [Recovering/Resolving]
  - Face oedema [Recovering/Resolving]
  - Glossitis [Recovering/Resolving]
  - Pruritus generalised [Recovering/Resolving]
  - Dysphagia [Recovering/Resolving]
  - Dyspnoea [Recovering/Resolving]

NARRATIVE: CASE EVENT DATE: 20181120
